FAERS Safety Report 11497506 (Version 2)
Quarter: 2015Q3

REPORT INFORMATION
  Report Type: Spontaneous
  Country: AR (occurrence: AR)
  Receive Date: 20150911
  Receipt Date: 20150925
  Transmission Date: 20151125
  Serious: Yes (Other)
  Sender: FDA-Public Use
  Company Number: CHPA2015AR010600

PATIENT
  Age: 45 Year
  Sex: Male

DRUGS (2)
  1. NICOTINELL [Suspect]
     Active Substance: NICOTINE
     Indication: SMOKING CESSATION THERAPY
     Dosage: 12 DF, DAILY (FRACTIONATED IT)
     Route: 065
     Dates: start: 2007
  2. NICOTINELL [Suspect]
     Active Substance: NICOTINE
     Dosage: 1 DF, DAILY (FRACTIONATED IT)
     Route: 065

REACTIONS (3)
  - Drug dependence [Unknown]
  - Feeling of despair [Unknown]
  - Wrong technique in product usage process [Unknown]

NARRATIVE: CASE EVENT DATE: 2007
